FAERS Safety Report 5445884-3 (Version None)
Quarter: 2007Q3

REPORT INFORMATION
  Report Type: 
  Country: None (occurrence: None)
  Receive Date: 20070907
  Receipt Date: 20070905
  Transmission Date: 20080115
  Serious: Yes (Other)
  Sender: FDA-Public Use
  Company Number: PHNU2007DE02536

PATIENT
  Sex: Female

DRUGS (1)
  1. LEPONEX [Suspect]
     Indication: SCHIZOPHRENIA
     Dosage: 100 MG/DAY
     Route: 048
     Dates: start: 20000101

REACTIONS (4)
  - BREAST CANCER [None]
  - BREAST OPERATION [None]
  - RADIOTHERAPY TO BREAST [None]
  - TUMOUR MARKER INCREASED [None]
